FAERS Safety Report 6182804-0 (Version None)
Quarter: 2009Q2

REPORT INFORMATION
  Report Type: 
  Country: None (occurrence: None)
  Receive Date: 20090507
  Receipt Date: 20090429
  Transmission Date: 20091009
  Serious: Yes (Hospitalization)
  Sender: FDA-Public Use
  Company Number: DE-EISAI INC.-E7272-00008-SPO-DE

PATIENT
  Age: 15 Year
  Sex: Male
  Weight: 48.8 kg

DRUGS (10)
  1. ONTAK [Suspect]
     Indication: MYCOSIS FUNGOIDES STAGE III
     Route: 042
     Dates: start: 20081027, end: 20081031
  2. ONTAK [Suspect]
     Route: 042
     Dates: start: 20081008, end: 20081012
  3. REKAWAN [Concomitant]
     Dates: start: 20080930
  4. LASIX [Concomitant]
     Dates: start: 20080930
  5. AMPHOTERICIN B [Concomitant]
     Indication: INFECTION
     Dates: start: 20080520
  6. COTRIM [Concomitant]
     Indication: INFECTION
     Dates: start: 20080521
  7. DIFLUCAN [Concomitant]
     Indication: INFECTION
     Dates: start: 20080521
  8. ACTIQ [Concomitant]
     Indication: PAIN
     Dates: start: 20080930
  9. HYDROMORPHONE HCL [Concomitant]
     Indication: PAIN
     Dates: start: 20080930
  10. METAMIZOLE [Concomitant]
     Indication: PAIN
     Dates: start: 20081030

REACTIONS (4)
  - APPLICATION SITE OEDEMA [None]
  - INFECTION [None]
  - LYMPHADENOPATHY [None]
  - PAIN [None]
